FAERS Safety Report 16835974 (Version 1)
Quarter: 2019Q3

REPORT INFORMATION
  Report Type: Report from Study
  Country: AU (occurrence: AU)
  Receive Date: 20190920
  Receipt Date: 20190920
  Transmission Date: 20191005
  Serious: Yes (Death, Hospitalization, Other)
  Sender: FDA-Public Use
  Company Number: AU-BRISTOL-MYERS SQUIBB COMPANY-BMS-2019-090455

PATIENT
  Age: 76 Year
  Sex: Female

DRUGS (1)
  1. NIVOLUMAB [Suspect]
     Active Substance: NIVOLUMAB
     Indication: MALIGNANT MELANOMA
     Dosage: 155 MILLIGRAM, Q2WK
     Route: 042
     Dates: end: 20190920

REACTIONS (2)
  - Pulmonary embolism [Fatal]
  - Haemoptysis [Fatal]

NARRATIVE: CASE EVENT DATE: 20190920
